FAERS Safety Report 6311796-6 (Version None)
Quarter: 2009Q3

REPORT INFORMATION
  Report Type: 
  Country: None (occurrence: None)
  Receive Date: 20090817
  Receipt Date: 20090812
  Transmission Date: 20100115
  Serious: Yes (Other)
  Sender: FDA-Public Use
  Company Number: US-GENENTECH-286618

PATIENT
  Sex: Female
  Weight: 94.331 kg

DRUGS (23)
  1. OMALIZUMAB [Suspect]
     Indication: SKIN TEST
     Dosage: UNK
     Route: 023
     Dates: start: 20090709, end: 20090709
  2. PULMICORT-100 [Concomitant]
     Indication: ASTHMA
     Dosage: 1 MG, BID
  3. ZYRTEC [Concomitant]
     Indication: HYPERSENSITIVITY
     Dosage: 10 MG, QD
     Route: 048
  4. SINGULAIR [Concomitant]
     Indication: ASTHMA
     Dosage: 10 MG, QAM
     Route: 048
  5. SINGULAIR [Concomitant]
     Indication: HYPERSENSITIVITY
  6. NASONEX [Concomitant]
     Indication: HYPERSENSITIVITY
     Dosage: 1 UNK, QD
  7. NASONEX [Concomitant]
     Dosage: UNK
  8. ASTEPRO [Concomitant]
     Indication: DRUG USE FOR UNKNOWN INDICATION
     Dosage: 1 UNK, QD
  9. XOPENEX [Concomitant]
     Indication: ASTHMA
     Dosage: 1.25 UNK, PRN
  10. PROVENTIL-HFA [Concomitant]
     Indication: ASTHMA
     Dosage: UNK
  11. PREDNISONE [Concomitant]
     Indication: DRUG USE FOR UNKNOWN INDICATION
     Dosage: UNK
  12. NEXIUM [Concomitant]
     Indication: GASTROOESOPHAGEAL REFLUX DISEASE
     Dosage: 20 MG, UNK
     Route: 048
  13. ZANTAC [Concomitant]
     Indication: DRUG USE FOR UNKNOWN INDICATION
  14. BENADRYL [Concomitant]
     Indication: DRUG USE FOR UNKNOWN INDICATION
  15. VERAPAMIL [Concomitant]
     Indication: HYPERTENSION
     Dosage: UNK
     Route: 048
  16. ADVAIR HFA [Concomitant]
     Indication: ASTHMA
     Dosage: 1 PUFF, BID
  17. BENTYL [Concomitant]
     Indication: IRRITABLE BOWEL SYNDROME
     Dosage: UNK
     Route: 048
  18. ZOFRAN [Concomitant]
     Indication: GASTROOESOPHAGEAL REFLUX DISEASE
     Dosage: UNK
     Route: 048
  19. AVAPRO [Concomitant]
     Indication: HYPERTENSION
     Dosage: UNK
     Route: 048
  20. TERAZOSIN [Concomitant]
     Indication: HYPERTENSION
     Dosage: 1 MG, UNK
     Route: 048
  21. TRAMADOL [Concomitant]
     Indication: PAIN
     Dosage: 50 MG, PRN
     Route: 048
  22. HYDROCHLOROTHIAZIDE [Concomitant]
     Indication: HYPERTENSION
     Dosage: UNK
     Route: 048
  23. UNKNOWN MEDICATION [Concomitant]
     Indication: DIABETES MELLITUS
     Dosage: 30 MG, BID
     Route: 048

REACTIONS (1)
  - STATUS ASTHMATICUS [None]
